FAERS Safety Report 14807416 (Version 1)
Quarter: 2018Q2

REPORT INFORMATION
  Report Type: Spontaneous
  Country: US (occurrence: US)
  Receive Date: 20180425
  Receipt Date: 20180425
  Transmission Date: 20180711
  Serious: Yes (Hospitalization)
  Sender: FDA-Public Use
  Company Number: US-ASTRAZENECA-2018SE51939

PATIENT
  Age: 24347 Day
  Sex: Male
  Weight: 97.5 kg

DRUGS (7)
  1. CRESTOR [Suspect]
     Active Substance: ROSUVASTATIN CALCIUM
     Indication: PROPHYLAXIS
     Dosage: 20.0MG UNKNOWN
     Route: 048
  2. ASPIRIN. [Concomitant]
     Active Substance: ASPIRIN
     Route: 048
  3. LEVOTHYROXINE. [Concomitant]
     Active Substance: LEVOTHYROXINE
     Indication: THYROID DISORDER
     Dosage: 25.0UG UNKNOWN
     Route: 048
  4. METOPROLOL SUCCINATE. [Suspect]
     Active Substance: METOPROLOL SUCCINATE
     Dosage: 25.0MG UNKNOWN
     Route: 048
     Dates: start: 20180310
  5. BRILINTA [Suspect]
     Active Substance: TICAGRELOR
     Indication: STENT PLACEMENT
     Route: 048
     Dates: start: 20180312
  6. VALSARTAN. [Concomitant]
     Active Substance: VALSARTAN
     Dosage: 160.0MG UNKNOWN
     Dates: start: 20180308
  7. IMDUR [Concomitant]
     Active Substance: ISOSORBIDE MONONITRATE
     Indication: BLOOD PRESSURE ABNORMAL
     Dosage: UNKNOWN
     Route: 065
     Dates: start: 20180414

REACTIONS (14)
  - Respiration abnormal [Unknown]
  - Nasal congestion [Not Recovered/Not Resolved]
  - Throat tightness [Unknown]
  - Dyspnoea [Not Recovered/Not Resolved]
  - Sinusitis [Not Recovered/Not Resolved]
  - Oxygen saturation decreased [Unknown]
  - Seasonal allergy [Not Recovered/Not Resolved]
  - Blood pressure decreased [Unknown]
  - Hypertension [Unknown]
  - Respiratory rate increased [Unknown]
  - Lethargy [Not Recovered/Not Resolved]
  - Chest pain [Recovering/Resolving]
  - Arterial occlusive disease [Unknown]
  - Anxiety [Not Recovered/Not Resolved]

NARRATIVE: CASE EVENT DATE: 20180308
